FAERS Safety Report 8121238-6 (Version None)
Quarter: 2012Q1

REPORT INFORMATION
  Report Type: 
  Country: None (occurrence: None)
  Receive Date: 20120206
  Receipt Date: 20120127
  Transmission Date: 20120608
  Serious: Yes (Other)
  Sender: FDA-Public Use
  Company Number: 2012SP005505

PATIENT
  Age: 21 Year
  Sex: Female
  Weight: 83.9154 kg

DRUGS (2)
  1. IMPLANON [Suspect]
     Indication: CONTRACEPTION
     Dates: start: 20110510
  2. ZOVIRAX [Concomitant]

REACTIONS (4)
  - DEVICE DISLOCATION [None]
  - WEIGHT INCREASED [None]
  - CONVULSION [None]
  - CONDITION AGGRAVATED [None]
